FAERS Safety Report 5862173-3 (Version None)
Quarter: 2008Q3

REPORT INFORMATION
  Report Type: 
  Country: None (occurrence: None)
  Receive Date: 20080828
  Receipt Date: 20071026
  Transmission Date: 20090109
  Serious: No
  Sender: FDA-Public Use
  Company Number: A0690091A

PATIENT
  Age: 43 Year
  Sex: Male

DRUGS (1)
  1. ZOVIRAX [Suspect]
     Route: 048
     Dates: start: 20070901, end: 20071001

REACTIONS (1)
  - FLATULENCE [None]
